FAERS Safety Report 24687364 (Version 2)
Quarter: 2024Q4

REPORT INFORMATION
  Report Type: Report from Study
  Country: US (occurrence: US)
  Receive Date: 20241202
  Receipt Date: 20241205
  Transmission Date: 20250115
  Serious: Yes (Death)
  Sender: DAIICHI
  Company Number: US-DSJP-DSU-2023-150608

PATIENT
  Age: 58 Year
  Sex: Female
  Weight: 49.1 kg

DRUGS (9)
  1. ENHERTU [Suspect]
     Active Substance: FAM-TRASTUZUMAB DERUXTECAN-NXKI
     Indication: Pancreatic carcinoma
     Dosage: 319.36 MG, ONCE EVERY 3 WK
     Route: 042
     Dates: start: 20231117, end: 20231117
  2. ENHERTU [Suspect]
     Active Substance: FAM-TRASTUZUMAB DERUXTECAN-NXKI
     Indication: Malignant neoplasm of ampulla of Vater
     Dosage: 269.46 MG
     Route: 042
     Dates: start: 20231117
  3. ENHERTU [Suspect]
     Active Substance: FAM-TRASTUZUMAB DERUXTECAN-NXKI
     Dosage: 319.36 MG, ONCE EVERY 3 WK
     Route: 042
     Dates: start: 20231120, end: 20231120
  4. ENHERTU [Suspect]
     Active Substance: FAM-TRASTUZUMAB DERUXTECAN-NXKI
     Dosage: 265 MG, ONCE EVERY 3 WK
     Route: 042
  5. ENHERTU [Suspect]
     Active Substance: FAM-TRASTUZUMAB DERUXTECAN-NXKI
     Dosage: 200 MG, ONCE EVERY 3 WK
     Route: 042
     Dates: start: 20231117, end: 20231117
  6. ENHERTU [Suspect]
     Active Substance: FAM-TRASTUZUMAB DERUXTECAN-NXKI
     Dosage: 270 MG
     Route: 042
     Dates: start: 20231120
  7. ENHERTU [Suspect]
     Active Substance: FAM-TRASTUZUMAB DERUXTECAN-NXKI
     Dosage: 200 MG, ONCE EVERY 3 WK
     Route: 065
     Dates: start: 20241023, end: 20241023
  8. ENHERTU [Suspect]
     Active Substance: FAM-TRASTUZUMAB DERUXTECAN-NXKI
     Dosage: 5.4 MG/KG
     Route: 065
     Dates: start: 2024, end: 2024
  9. ENHERTU [Suspect]
     Active Substance: FAM-TRASTUZUMAB DERUXTECAN-NXKI
     Dosage: 4.4 MG/KG
     Route: 065
     Dates: start: 2024, end: 2024

REACTIONS (7)
  - Death [Fatal]
  - Weight increased [Unknown]
  - Weight decreased [Not Recovered/Not Resolved]
  - Therapy change [Unknown]
  - Therapy change [Unknown]
  - Off label use [Not Recovered/Not Resolved]
  - Inappropriate schedule of product administration [Not Recovered/Not Resolved]

NARRATIVE: CASE EVENT DATE: 20231117
